FAERS Safety Report 12663150 (Version 1)
Quarter: 2016Q3

REPORT INFORMATION
  Report Type: Report from Study
  Country: CA (occurrence: CA)
  Receive Date: 20160818
  Receipt Date: 20160818
  Transmission Date: 20161109
  Serious: Yes (Death)
  Sender: FDA-Public Use
  Company Number: PHHY2016CA094145

PATIENT
  Age: 68 Year
  Sex: Male

DRUGS (2)
  1. MEKINIST [Suspect]
     Active Substance: TRAMETINIB DIMETHYL SULFOXIDE
     Indication: METASTATIC MALIGNANT MELANOMA
     Dosage: 2 MG, QD
     Route: 048
     Dates: start: 20160630
  2. TAFINLAR [Suspect]
     Active Substance: DABRAFENIB MESYLATE
     Indication: METASTATIC MALIGNANT MELANOMA
     Dosage: 300 MG, QD
     Route: 048
     Dates: start: 20160630

REACTIONS (9)
  - Confusional state [Not Recovered/Not Resolved]
  - Mental disorder [Unknown]
  - Dizziness [Recovered/Resolved]
  - Constipation [Unknown]
  - Drug ineffective [Unknown]
  - Gait disturbance [Recovered/Resolved]
  - Diarrhoea [Unknown]
  - Death [Fatal]
  - Insomnia [Unknown]

NARRATIVE: CASE EVENT DATE: 20160814
